FAERS Safety Report 8073770-1 (Version None)
Quarter: 2012Q1

REPORT INFORMATION
  Report Type: 
  Country: None (occurrence: None)
  Receive Date: 20120126
  Receipt Date: 20120118
  Transmission Date: 20120608
  Serious: Yes (Hospitalization)
  Sender: FDA-Public Use
  Company Number: CHPA2012US001671

PATIENT
  Age: 58 Year
  Sex: Female

DRUGS (3)
  1. REGLAN [Suspect]
     Indication: EPIGASTRIC DISCOMFORT
  2. EXCEDRIN (MIGRAINE) [Suspect]
     Indication: HEADACHE
     Dosage: 2 DF, PRN
     Route: 048
     Dates: end: 20120115
  3. EXCEDRIN (MIGRAINE) [Suspect]
     Dosage: MORE THAN 2 CAPLETS
     Route: 048

REACTIONS (4)
  - EPIGASTRIC DISCOMFORT [None]
  - HYPOTENSION [None]
  - OVERDOSE [None]
  - ANGINA PECTORIS [None]
